FAERS Safety Report 8426284-0 (Version None)
Quarter: 2012Q2

REPORT INFORMATION
  Report Type: 
  Country: None (occurrence: None)
  Receive Date: 20120611
  Receipt Date: 20120531
  Transmission Date: 20120825
  Serious: Yes (Hospitalization, Other)
  Sender: FDA-Public Use
  Company Number: US-VERTEX PHARMACEUTICALS INC.-AE-2012-008350

PATIENT
  Sex: Female

DRUGS (3)
  1. INCIVEK [Suspect]
     Indication: HEPATITIS C
     Route: 048
     Dates: start: 20120128, end: 20120420
  2. RIBAVIRIN [Concomitant]
     Indication: HEPATITIS C
     Dates: start: 20120128
  3. PEGASYS [Concomitant]
     Indication: HEPATITIS C
     Dates: start: 20120128

REACTIONS (5)
  - SWELLING FACE [None]
  - PITUITARY TUMOUR [None]
  - HEADACHE [None]
  - LOCAL SWELLING [None]
  - EYE SWELLING [None]
